FAERS Safety Report 7664104-2 (Version None)
Quarter: 2011Q3

REPORT INFORMATION
  Report Type: 
  Country: None (occurrence: None)
  Receive Date: 20110805
  Receipt Date: 20100818
  Transmission Date: 20111222
  Serious: No
  Sender: FDA-Public Use
  Company Number: US-ABBOTT-10P-163-0665745-00

PATIENT
  Sex: Male
  Weight: 74.91 kg

DRUGS (2)
  1. NIASPAN [Suspect]
     Indication: BLOOD CHOLESTEROL INCREASED
     Dosage: 500MG AT BEDTIME
     Dates: start: 20100813
  2. COUMADIN [Concomitant]
     Indication: PROTEIN TOTAL ABNORMAL

REACTIONS (2)
  - FLUSHING [None]
  - PRURITUS [None]
